FAERS Safety Report 21244148 (Version 1)
Quarter: 2022Q3

REPORT INFORMATION
  Report Type: Spontaneous
  Country: IL (occurrence: None)
  Receive Date: 20220823
  Receipt Date: 20220823
  Transmission Date: 20221027
  Serious: Yes (Other)
  Sender: FDA-Public Use
  Company Number: IL-ROCHE-3165594

PATIENT
  Age: 54 Year
  Sex: Female

DRUGS (4)
  1. XELODA [Suspect]
     Active Substance: CAPECITABINE
     Indication: Breast cancer
     Route: 048
  2. LETROZOLE [Suspect]
     Active Substance: LETROZOLE
     Indication: Breast cancer
     Route: 065
  3. ANASTROZOLE [Suspect]
     Active Substance: ANASTROZOLE
     Indication: Breast cancer
     Route: 065
  4. TAXOL [Suspect]
     Active Substance: PACLITAXEL
     Indication: Breast cancer
     Route: 065

REACTIONS (1)
  - Breast cancer recurrent [Unknown]

NARRATIVE: CASE EVENT DATE: 20220501
